FAERS Safety Report 12614021 (Version 1)
Quarter: 2016Q3

REPORT INFORMATION
  Report Type: Spontaneous
  Country: US (occurrence: None)
  Receive Date: 20160801
  Receipt Date: 20160801
  Transmission Date: 20161109
  Serious: Yes (Hospitalization)
  Sender: FDA-Public Use
  Company Number: None

PATIENT
  Age: 52 Year
  Sex: Male
  Weight: 56.7 kg

DRUGS (1)
  1. MEMANTINE HYDROCHLORIDE. [Suspect]
     Active Substance: MEMANTINE HYDROCHLORIDE
     Dates: end: 20160601

REACTIONS (4)
  - Treatment noncompliance [None]
  - Seizure [None]
  - Vasogenic cerebral oedema [None]
  - Brain midline shift [None]

NARRATIVE: CASE EVENT DATE: 20160705
